FAERS Safety Report 16238187 (Version 4)
Quarter: 2020Q3

REPORT INFORMATION
  Report Type: Spontaneous
  Country: US (occurrence: US)
  Receive Date: 20190425
  Receipt Date: 20200902
  Transmission Date: 20201102
  Serious: No
  Sender: FDA-Public Use
  Company Number: US-PFIZER INC-2019171689

PATIENT
  Age: 35 Year
  Sex: Female

DRUGS (3)
  1. XELJANZ XR [Suspect]
     Active Substance: TOFACITINIB CITRATE
     Dosage: 11 MG
     Dates: start: 20190701, end: 20200827
  2. XELJANZ XR [Suspect]
     Active Substance: TOFACITINIB CITRATE
     Dosage: 11 MG
     Dates: start: 20190328
  3. XELJANZ XR [Suspect]
     Active Substance: TOFACITINIB CITRATE
     Dosage: 11 MG
     Dates: start: 20190401

REACTIONS (6)
  - Facial pain [Unknown]
  - Disease recurrence [Unknown]
  - Stomatitis [Unknown]
  - Drug ineffective [Unknown]
  - Herpes zoster [Unknown]
  - Oral herpes [Unknown]

NARRATIVE: CASE EVENT DATE: 201904
